FAERS Safety Report 6841018-9 (Version None)
Quarter: 2010Q3

REPORT INFORMATION
  Report Type: 
  Country: None (occurrence: None)
  Receive Date: 20100714
  Receipt Date: 20070625
  Transmission Date: 20110219
  Serious: No
  Sender: FDA-Public Use
  Company Number: US-PFIZER INC-2007053409

PATIENT
  Sex: Female
  Weight: 57.727 kg

DRUGS (6)
  1. CHANTIX [Suspect]
     Indication: SMOKING CESSATION THERAPY
     Route: 048
     Dates: start: 20070620, end: 20070622
  2. LISINOPRIL [Concomitant]
  3. PLAVIX [Concomitant]
  4. ACETYLSALICYLIC ACID [Concomitant]
  5. CRESTOR [Concomitant]
  6. TOPROL-XL [Concomitant]

REACTIONS (4)
  - DYSGEUSIA [None]
  - HEADACHE [None]
  - NAUSEA [None]
  - VOMITING [None]
